FAERS Safety Report 5660154-6 (Version None)
Quarter: 2008Q1

REPORT INFORMATION
  Report Type: 
  Country: None (occurrence: None)
  Receive Date: 20080306
  Receipt Date: 20080221
  Transmission Date: 20080703
  Serious: Yes (Hospitalization)
  Sender: FDA-Public Use
  Company Number: 2007BI010195

PATIENT
  Age: 68 Year
  Sex: Female

DRUGS (14)
  1. TYSABRI [Suspect]
     Indication: MULTIPLE SCLEROSIS
     Dosage: 300 MG; QM; IV
     Route: 042
     Dates: start: 20060711
  2. LISINOPRIL [Concomitant]
  3. AVONEX [Concomitant]
  4. TOPROL [Concomitant]
  5. FOSAMAX [Concomitant]
  6. ASPIRIN [Concomitant]
  7. PROVIGIL [Concomitant]
  8. VITAMIN D [Concomitant]
  9. B6 [Concomitant]
  10. DEMADEX [Concomitant]
  11. ATIVAN [Concomitant]
  12. NORCO [Concomitant]
  13. SUPPLEMENTS [Concomitant]
  14. TORSEMIDE [Concomitant]

REACTIONS (56)
  - ACTIVATED PARTIAL THROMBOPLASTIN TIME PROLONGED [None]
  - ALANINE AMINOTRANSFERASE INCREASED [None]
  - AMNESIA [None]
  - APLASTIC ANAEMIA [None]
  - ASPARTATE AMINOTRANSFERASE INCREASED [None]
  - ATELECTASIS [None]
  - BACTERIAL INFECTION [None]
  - BLOOD ALBUMIN DECREASED [None]
  - BLOOD ALKALINE PHOSPHATASE INCREASED [None]
  - BLOOD CALCIUM INCREASED [None]
  - BLOOD CHLORIDE INCREASED [None]
  - BLOOD CREATININE INCREASED [None]
  - BLOOD CULTURE POSITIVE [None]
  - BLOOD FOLATE INCREASED [None]
  - BLOOD GLUCOSE INCREASED [None]
  - BLOOD LACTATE DEHYDROGENASE INCREASED [None]
  - BLOOD PH INCREASED [None]
  - BLOOD PHOSPHORUS DECREASED [None]
  - BLOOD UREA INCREASED [None]
  - BONE MARROW FAILURE [None]
  - BRONCHOALVEOLAR LAVAGE ABNORMAL [None]
  - CARDIAC FAILURE CONGESTIVE [None]
  - CEREBELLAR SYNDROME [None]
  - CONFUSIONAL STATE [None]
  - FACTOR XI DEFICIENCY [None]
  - FAECAL INCONTINENCE [None]
  - FALL [None]
  - GLOBULINS INCREASED [None]
  - HAEMATOCHEZIA [None]
  - HAEMATURIA [None]
  - HAEMOLYSIS [None]
  - HAEMORRHAGE [None]
  - HAPTOGLOBIN INCREASED [None]
  - HYPOTHERMIA [None]
  - HYPOVOLAEMIA [None]
  - INTERNATIONAL NORMALISED RATIO INCREASED [None]
  - LUNG DISORDER [None]
  - MULTIPLE SCLEROSIS [None]
  - MULTIPLE SCLEROSIS RELAPSE [None]
  - NEUTROPHIL PELGER-HUET ANOMALY PRESENT [None]
  - NUCLEAR MAGNETIC RESONANCE IMAGING BRAIN ABNORMAL [None]
  - OSTEOPOROSIS [None]
  - PARAPARESIS [None]
  - PCO2 DECREASED [None]
  - PLEURAL EFFUSION [None]
  - PNEUMONIA [None]
  - PNEUMONITIS [None]
  - PULMONARY OEDEMA [None]
  - RECTAL HAEMORRHAGE [None]
  - RESPIRATORY FAILURE [None]
  - SERUM FERRITIN INCREASED [None]
  - SKIN LACERATION [None]
  - SPEECH DISORDER [None]
  - THROMBOTIC THROMBOCYTOPENIC PURPURA [None]
  - TRANSFERRIN SATURATION INCREASED [None]
  - URINARY TRACT INFECTION [None]
